FAERS Safety Report 4635041-2 (Version None)
Quarter: 2005Q2

REPORT INFORMATION
  Report Type: 
  Country: None (occurrence: None)
  Receive Date: 20050411
  Receipt Date: 20050329
  Transmission Date: 20051028
  Serious: Yes (Death, Hospitalization, Other)
  Sender: FDA-Public Use
  Company Number: 2005-0008048

PATIENT
  Age: 26 Year
  Sex: Male

DRUGS (6)
  1. TRUVADA [Suspect]
     Indication: HIV INFECTION
     Dosage: SEE IMAGE
     Dates: start: 20050111, end: 20050125
  2. TRUVADA [Suspect]
     Indication: HIV INFECTION
     Dosage: SEE IMAGE
     Dates: start: 20041130
  3. SUSTIVA [Concomitant]
  4. AZITHROMYCIN [Concomitant]
  5. RIFABUTIN (RIFABUTIN) [Concomitant]
  6. ETHAMBUTOL (ETHAMBUTOL) [Concomitant]

REACTIONS (6)
  - IMMUNE RECONSTITUTION SYNDROME [None]
  - KAPOSI'S SARCOMA [None]
  - PYREXIA [None]
  - SEPSIS [None]
  - SWELLING FACE [None]
  - THROMBOCYTOPENIA [None]
